FAERS Safety Report 7309149-7 (Version None)
Quarter: 2011Q1

REPORT INFORMATION
  Report Type: 
  Country: None (occurrence: None)
  Receive Date: 20110223
  Receipt Date: 20110215
  Transmission Date: 20110831
  Serious: Yes (Life-Threatening, Hospitalization, Other)
  Sender: FDA-Public Use
  Company Number: ES-ELI_LILLY_AND_COMPANY-ES201102000716

PATIENT
  Age: 46 Year
  Sex: Male

DRUGS (2)
  1. FOLI DOCE [Concomitant]
     Indication: PREMEDICATION
     Dosage: 1 D/F, DAILY (1/D)
     Dates: start: 20100411, end: 20110126
  2. ALIMTA [Suspect]
     Indication: LUNG ADENOCARCINOMA
     Dosage: 500 MG/M2, UNK
     Route: 042
     Dates: start: 20100416, end: 20101214

REACTIONS (2)
  - NEPHROGENIC DIABETES INSIPIDUS [None]
  - GENERALISED OEDEMA [None]
